FAERS Safety Report 9433901 (Version 3)
Quarter: 2014Q2

REPORT INFORMATION
  Report Type: Spontaneous
  Country: GB (occurrence: GB)
  Receive Date: 20130801
  Receipt Date: 20140410
  Transmission Date: 20141212
  Serious: Yes (Other)
  Sender: FDA-Public Use
  Company Number: PHHY2013GB078924

PATIENT
  Age: 32 Year
  Sex: Female
  Weight: 50 kg

DRUGS (4)
  1. SERTRALINE [Suspect]
     Indication: SOCIAL PHOBIA
     Dosage: 50 MG, QD
     Route: 048
     Dates: start: 20120407, end: 20120416
  2. SERTRALINE [Suspect]
     Indication: ANXIETY
  3. DIANETTE [Concomitant]
  4. AMITRIPTYLINE [Concomitant]
     Dosage: 20 MG, QD LONGTERM
     Dates: start: 20120412

REACTIONS (7)
  - Phobia [Recovered/Resolved with Sequelae]
  - Fear [Recovered/Resolved with Sequelae]
  - Violence-related symptom [Recovered/Resolved with Sequelae]
  - Psychotic disorder [Recovered/Resolved with Sequelae]
  - Paranoia [Recovered/Resolved with Sequelae]
  - Insomnia [Recovered/Resolved with Sequelae]
  - Hallucination, visual [Recovered/Resolved with Sequelae]
